FAERS Safety Report 11859357 (Version 1)
Quarter: 2015Q4

REPORT INFORMATION
  Report Type: Spontaneous
  Country: US (occurrence: US)
  Receive Date: 20151221
  Receipt Date: 20151221
  Transmission Date: 20160305
  Serious: No
  Sender: FDA-Public Use
  Company Number: GXBR2015US002563

PATIENT
  Age: 67 Year
  Sex: Male
  Weight: 75.28 kg

DRUGS (5)
  1. GLUCOSAMINE [Concomitant]
     Active Substance: GLUCOSAMINE
     Indication: SUPPLEMENTATION THERAPY
     Dosage: UNK DF, UNK
  2. LEVOFLOXACIN. [Suspect]
     Active Substance: LEVOFLOXACIN
     Indication: PNEUMONIA
     Dosage: 750 MG, 1QAM AND 1QPM
     Route: 048
     Dates: start: 20151108
  3. LEVOFLOXACIN. [Suspect]
     Active Substance: LEVOFLOXACIN
     Dosage: 750 MG, (1/2 TABLET IN AM AND 1/2 TABLET IN PM)
     Route: 048
  4. PROBIOTICS NOS [Concomitant]
     Active Substance: PROBIOTICS NOS
     Indication: SUPPLEMENTATION THERAPY
     Dosage: UNK DF, UNK
  5. SAW PALMETTO [Concomitant]
     Active Substance: SAW PALMETTO
     Indication: SUPPLEMENTATION THERAPY
     Dosage: UNK DF, UNK

REACTIONS (6)
  - Chest pain [Recovering/Resolving]
  - Thirst [Recovering/Resolving]
  - Jaw disorder [Recovering/Resolving]
  - Flank pain [Recovering/Resolving]
  - Tachycardia [Recovering/Resolving]
  - Bradycardia [Recovering/Resolving]

NARRATIVE: CASE EVENT DATE: 20151110
